FAERS Safety Report 4996631-0 (Version None)
Quarter: 2006Q2

REPORT INFORMATION
  Report Type: 
  Country: None (occurrence: None)
  Receive Date: 20060509
  Receipt Date: 20060428
  Transmission Date: 20061013
  Serious: Yes (Death)
  Sender: FDA-Public Use
  Company Number: US-JNJFOC-20060500071

PATIENT
  Sex: Female
  Weight: 47.6 kg

DRUGS (9)
  1. NATRECOR [Suspect]
     Dosage: 28.2MCG/HR
  2. NATRECOR [Suspect]
     Dosage: BOLUS DOSE
  3. LASIX [Concomitant]
     Route: 042
  4. NITROGLYCERIN [Concomitant]
     Route: 061
  5. DIGOXIN [Concomitant]
     Route: 048
  6. BUMETANIDE [Concomitant]
     Indication: DIURETIC THERAPY
     Route: 042
  7. DOPAMINE [Concomitant]
     Route: 042
  8. TYLENOL (CAPLET) [Concomitant]
  9. ZETIA [Concomitant]
     Route: 048

REACTIONS (4)
  - DEATH [None]
  - DRUG INEFFECTIVE [None]
  - HYPOGLYCAEMIA [None]
  - UNRESPONSIVE TO VERBAL STIMULI [None]
